FAERS Safety Report 22098079 (Version 1)
Quarter: 2023Q1

REPORT INFORMATION
  Report Type: Spontaneous
  Country: US (occurrence: US)
  Receive Date: 20230315
  Receipt Date: 20230315
  Transmission Date: 20230418
  Serious: Yes (Other)
  Sender: FDA-Public Use
  Company Number: US-002147023-NVSC2023US058449

PATIENT
  Age: 8 Year
  Sex: Male

DRUGS (1)
  1. NELARABINE [Suspect]
     Active Substance: NELARABINE
     Indication: T-cell type acute leukaemia
     Dosage: UNK
     Route: 065

REACTIONS (6)
  - T-cell type acute leukaemia [Unknown]
  - Malignant neoplasm progression [Unknown]
  - Depressed level of consciousness [Recovering/Resolving]
  - Posterior reversible encephalopathy syndrome [Unknown]
  - Toxic leukoencephalopathy [Unknown]
  - Drug ineffective [Unknown]
